FAERS Safety Report 4684414-0 (Version None)
Quarter: 2005Q2

REPORT INFORMATION
  Report Type: 
  Country: None (occurrence: None)
  Receive Date: 20050531
  Receipt Date: 20040407
  Transmission Date: 20051028
  Serious: Yes (Other)
  Sender: FDA-Public Use
  Company Number: 200412028US

PATIENT
  Age: 60 Year
  Weight: 104.5 kg

DRUGS (1)
  1. LOVENOX [Suspect]
     Indication: DEEP VEIN THROMBOSIS

REACTIONS (1)
  - GASTROINTESTINAL HAEMORRHAGE [None]
